FAERS Safety Report 6671987-1 (Version None)
Quarter: 2010Q2

REPORT INFORMATION
  Report Type: 
  Country: None (occurrence: None)
  Receive Date: 20100405
  Receipt Date: 20100322
  Transmission Date: 20101027
  Serious: Yes (Hospitalization)
  Sender: FDA-Public Use
  Company Number: 1-21984450

PATIENT
  Age: 51 Year
  Sex: Female
  Weight: 49.8957 kg

DRUGS (1)
  1. FENTANYL [Suspect]
     Indication: PAIN
     Dosage: 100 MCG/HR, Q 72 HRS, TRANSDERMAL
     Route: 062
     Dates: start: 20100223, end: 20100225

REACTIONS (3)
  - ABSCESS [None]
  - APPLICATION SITE IRRITATION [None]
  - SKIN BURNING SENSATION [None]
